FAERS Safety Report 14729431 (Version 6)
Quarter: 2019Q3

REPORT INFORMATION
  Report Type: Spontaneous
  Country: US (occurrence: US)
  Receive Date: 20180406
  Receipt Date: 20190822
  Transmission Date: 20191004
  Serious: Yes (Hospitalization, Other)
  Sender: FDA-Public Use
  Company Number: US-ACTELION-A-NJ2018-170161

PATIENT
  Age: 2 Year
  Sex: Male

DRUGS (4)
  1. TRACLEER [Suspect]
     Active Substance: BOSENTAN
     Indication: PULMONARY ARTERIAL HYPERTENSION
     Dosage: 15.625 MG, BID
     Route: 048
     Dates: start: 20170622
  2. REMODULIN [Concomitant]
     Active Substance: TREPROSTINIL
     Dosage: 44 NG/KG, PER MIN
  3. SILDENAFIL. [Concomitant]
     Active Substance: SILDENAFIL
     Dosage: 10 MG, BID
  4. TRACLEER [Suspect]
     Active Substance: BOSENTAN
     Dosage: 32 MG, BID
     Route: 048

REACTIONS (7)
  - Tonsillectomy [Recovered/Resolved]
  - Adenoidal disorder [Unknown]
  - Respiratory syncytial virus infection [Unknown]
  - Viral infection [Unknown]
  - Dyspnoea [Unknown]
  - Adenotonsillectomy [Unknown]
  - Tonsillar hypertrophy [Unknown]

NARRATIVE: CASE EVENT DATE: 20180503
